FAERS Safety Report 13349732 (Version 3)
Quarter: 2017Q1

REPORT INFORMATION
  Report Type: Spontaneous
  Country: AR (occurrence: AR)
  Receive Date: 20170320
  Receipt Date: 20170331
  Transmission Date: 20170429
  Serious: Yes (Other)
  Sender: FDA-Public Use
  Company Number: AR-BAYER-2017-052121

PATIENT
  Age: 68 Year
  Sex: Female

DRUGS (3)
  1. TACROLIMUS. [Concomitant]
     Active Substance: TACROLIMUS
     Dosage: UNK
  2. MEPREDNISONE [Concomitant]
     Active Substance: MEPREDNISONE
     Dosage: UNK
  3. STIVARGA [Suspect]
     Active Substance: REGORAFENIB
     Indication: HEPATOCELLULAR CARCINOMA
     Dosage: UNK
     Dates: start: 20170110, end: 20170310

REACTIONS (13)
  - Asthenia [Not Recovered/Not Resolved]
  - Fatigue [Not Recovered/Not Resolved]
  - Hepatocellular carcinoma [None]
  - Lymphadenopathy mediastinal [Not Recovered/Not Resolved]
  - Eastern Cooperative Oncology Group performance status worsened [None]
  - Metastases to lung [Not Recovered/Not Resolved]
  - Dyspnoea [None]
  - Renal impairment [None]
  - Metastases to pleura [Not Recovered/Not Resolved]
  - Pulmonary mass [Not Recovered/Not Resolved]
  - Pleural effusion [Not Recovered/Not Resolved]
  - Impaired self-care [None]
  - Off label use [None]

NARRATIVE: CASE EVENT DATE: 20170201
